FAERS Safety Report 9118385 (Version 1)
Quarter: 2013Q1

REPORT INFORMATION
  Report Type: Spontaneous
  Country: CN (occurrence: None)
  Receive Date: 20130128
  Receipt Date: 20130128
  Transmission Date: 20140127
  Serious: Yes (Other)
  Sender: FDA-Public Use
  Company Number: FK201300101

PATIENT
  Age: 2 Year
  Sex: Female

DRUGS (5)
  1. LEVETIRACETAM [Suspect]
     Indication: CONVULSION
     Dosage: UNKNOWN,  PER DAY,  UNKNOWN?DAY 35  -  UNKNOWN
  2. PHENOBARBITAL (PHNOBARBITAL) [Concomitant]
  3. OXCARBAZEPINE (OXCARBAZEPINE) TABLET, 300MG [Concomitant]
  4. METHYLPREDNISOLONE (METHYLPREDNISOLONE) [Concomitant]
  5. TOPIRAMATE (TOPIRAMATE) [Concomitant]

REACTIONS (4)
  - Stevens-Johnson syndrome [None]
  - Pyrexia [None]
  - Convulsion [None]
  - Disease recurrence [None]
